FAERS Safety Report 17478426 (Version 1)
Quarter: 2020Q1

REPORT INFORMATION
  Report Type: Report from Study
  Country: CA (occurrence: CA)
  Receive Date: 20200228
  Receipt Date: 20200228
  Transmission Date: 20200409
  Serious: Yes (Hospitalization)
  Sender: FDA-Public Use
  Company Number: CA-JNJFOC-20190723425

PATIENT
  Age: 36 Year
  Sex: Male
  Weight: 125 kg

DRUGS (2)
  1. STELARA [Suspect]
     Active Substance: USTEKINUMAB
     Indication: CROHN^S DISEASE
     Dosage: INDUCTION DOSE, FOLLOWED BY UNSPECIFIED DOSE ONCE EVERY EIGHT WEEKS
     Route: 042
     Dates: start: 20190524
  2. STELARA [Suspect]
     Active Substance: USTEKINUMAB
     Route: 058

REACTIONS (8)
  - Nausea [Unknown]
  - Asthenia [Unknown]
  - Frequent bowel movements [Unknown]
  - Infected cyst [Unknown]
  - Dizziness [Not Recovered/Not Resolved]
  - Abdominal pain [Unknown]
  - Treatment noncompliance [Unknown]
  - General physical health deterioration [Unknown]

NARRATIVE: CASE EVENT DATE: 20190705
